FAERS Safety Report 26218798 (Version 1)
Quarter: 2025Q4

REPORT INFORMATION
  Report Type: Spontaneous
  Country: EU (occurrence: None)
  Receive Date: 20251231
  Receipt Date: 20251231
  Transmission Date: 20260117
  Serious: Yes (Death)
  Sender: ETHYPHARM
  Company Number: None

PATIENT
  Age: 44 Year
  Sex: Female

DRUGS (4)
  1. BUPRENORPHINE [Suspect]
     Active Substance: BUPRENORPHINE
     Dosage: INCONNUE
     Route: 048
     Dates: end: 2023
  2. ALCOHOL [Suspect]
     Active Substance: ALCOHOL
     Dosage: INCONNUE
     Route: 048
     Dates: end: 2023
  3. CYAMEMAZINE [Suspect]
     Active Substance: CYAMEMAZINE
     Dosage: INCONNUE
     Route: 048
     Dates: end: 2023
  4. COCAINE [Concomitant]
     Active Substance: COCAINE
     Dosage: INCONNUE
     Route: 048
     Dates: end: 2023

REACTIONS (3)
  - Substance abuse [Fatal]
  - Toxicity to various agents [Fatal]
  - Alcohol poisoning [Fatal]
